FAERS Safety Report 6203382-3 (Version None)
Quarter: 2009Q2

REPORT INFORMATION
  Report Type: 
  Country: None (occurrence: None)
  Receive Date: 20090527
  Receipt Date: 20090519
  Transmission Date: 20091009
  Serious: Yes (Death, Other)
  Sender: FDA-Public Use
  Company Number: AU-AVENTIS-200915243GDDC

PATIENT
  Age: 92 Year
  Sex: Male

DRUGS (3)
  1. ARAVA [Suspect]
     Dates: start: 20040201
  2. PREDNISONE [Concomitant]
     Dosage: DOSE: UNK
  3. ANTIHYPERTENSIVES [Concomitant]
     Dosage: DOSE: UNK

REACTIONS (2)
  - GASTRIC ULCER HAEMORRHAGE [None]
  - GASTROINTESTINAL HAEMORRHAGE [None]
